FAERS Safety Report 10907171 (Version 1)
Quarter: 2015Q1

REPORT INFORMATION
  Report Type: Spontaneous
  Country: US (occurrence: None)
  Receive Date: 20150309
  Receipt Date: 20150309
  Transmission Date: 20150721
  Serious: Yes (Other)
  Sender: FDA-Public Use
  Company Number: None

PATIENT
  Age: 38 Year
  Sex: Female
  Weight: 92.53 kg

DRUGS (4)
  1. BELVIQ [Suspect]
     Active Substance: LORCASERIN HYDROCHLORIDE
     Indication: WEIGHT CONTROL
     Dosage: 1 PILL
     Route: 048
     Dates: start: 20150209, end: 20150306
  2. BIRTH CONTROL PILLS [Concomitant]
     Active Substance: UNSPECIFIED INGREDIENT
  3. OMEPRZOL [Concomitant]
  4. FENOFIBRATE. [Concomitant]
     Active Substance: FENOFIBRATE

REACTIONS (3)
  - Haemorrhage [None]
  - Thrombosis [None]
  - Platelet count decreased [None]

NARRATIVE: CASE EVENT DATE: 20150307
